FAERS Safety Report 23078414 (Version 1)
Quarter: 2023Q4

REPORT INFORMATION
  Report Type: Spontaneous
  Country: IT (occurrence: IT)
  Receive Date: 20231018
  Receipt Date: 20231018
  Transmission Date: 20240110
  Serious: Yes (Hospitalization, Other)
  Sender: FDA-Public Use
  Company Number: IT-VELOXIS PHARMACEUTICALS, INC.-2023-VEL-00656

PATIENT
  Age: 37 Year
  Sex: Male

DRUGS (1)
  1. TACROLIMUS [Suspect]
     Active Substance: TACROLIMUS
     Indication: Renal transplant
     Dosage: UNK

REACTIONS (4)
  - Renal transplant failure [Unknown]
  - Kidney transplant rejection [Unknown]
  - Immunosuppressant drug level increased [Unknown]
  - Overdose [Unknown]
